FAERS Safety Report 10356828 (Version 1)
Quarter: 2014Q3

REPORT INFORMATION
  Report Type: Spontaneous
  Country: US (occurrence: None)
  Receive Date: 20140730
  Receipt Date: 20140730
  Transmission Date: 20150326
  Serious: No
  Sender: FDA-Public Use
  Company Number: None

PATIENT
  Age: 77 Year
  Sex: Male

DRUGS (1)
  1. XTANDI [Suspect]
     Active Substance: ENZALUTAMIDE
     Indication: PROSTATE CANCER
     Dosage: 4 CAPSULES QD ORAL
     Route: 048

REACTIONS (4)
  - Sleep disorder [None]
  - Fatigue [None]
  - Flushing [None]
  - Sinusitis [None]

NARRATIVE: CASE EVENT DATE: 20140716
